FAERS Safety Report 15754968 (Version 1)
Quarter: 2018Q4

REPORT INFORMATION
  Report Type: Spontaneous
  Country: IT (occurrence: IT)
  Receive Date: 20181224
  Receipt Date: 20181224
  Transmission Date: 20190205
  Serious: Yes (Death, Hospitalization, Other)
  Sender: FDA-Public Use
  Company Number: IT-AUROBINDO-AUR-APL-2018-003836

PATIENT
  Age: 44 Year
  Sex: Male

DRUGS (1)
  1. METFORMIN FILM-COATED TABLET [Suspect]
     Active Substance: METFORMIN HYDROCHLORIDE
     Indication: PRODUCT USED FOR UNKNOWN INDICATION
     Dosage: 3000 MILLIGRAM, DAILY
     Route: 065

REACTIONS (5)
  - Confusional state [Fatal]
  - Lactic acidosis [Fatal]
  - Acute kidney injury [Fatal]
  - Shock [Fatal]
  - Diarrhoea [Fatal]
